FAERS Safety Report 13530446 (Version 1)
Quarter: 2017Q2

REPORT INFORMATION
  Report Type: Spontaneous
  Country: US (occurrence: US)
  Receive Date: 20170509
  Receipt Date: 20170509
  Transmission Date: 20170830
  Serious: No
  Sender: FDA-Public Use
  Company Number: US-AMGEN-USASP2017067995

PATIENT
  Age: 78 Year
  Sex: Female

DRUGS (1)
  1. ENBREL [Suspect]
     Active Substance: ETANERCEPT
     Indication: STILL^S DISEASE
     Dosage: UNK
     Route: 065

REACTIONS (5)
  - Unevaluable event [Unknown]
  - Wrong technique in product usage process [Unknown]
  - Off label use [Unknown]
  - Pyrexia [Unknown]
  - Rash [Unknown]
